FAERS Safety Report 15499685 (Version 1)
Quarter: 2018Q4

REPORT INFORMATION
  Report Type: Spontaneous
  Country: NL (occurrence: NL)
  Receive Date: 20181015
  Receipt Date: 20181015
  Transmission Date: 20190205
  Serious: Yes (Death, Life-Threatening, Hospitalization)
  Sender: FDA-Public Use
  Company Number: NL-MYLANLABS-2018M1075614

PATIENT
  Age: 57 Year
  Sex: Male

DRUGS (2)
  1. PREDNISOLONE. [Suspect]
     Active Substance: PREDNISOLONE
     Indication: SARCOIDOSIS
  2. PREDNISOLONE. [Suspect]
     Active Substance: PREDNISOLONE
     Indication: TUBULOINTERSTITIAL NEPHRITIS
     Dosage: 5 MG, QD
     Route: 065

REACTIONS (7)
  - Pneumonia [Fatal]
  - Multiple organ dysfunction syndrome [Fatal]
  - Hyperammonaemic encephalopathy [Recovered/Resolved]
  - Intensive care unit acquired weakness [Fatal]
  - Mycobacterial infection [Fatal]
  - Coma [Recovered/Resolved]
  - Ascites [Recovered/Resolved]
